FAERS Safety Report 6877498-2 (Version None)
Quarter: 2010Q3

REPORT INFORMATION
  Report Type: 
  Country: None (occurrence: None)
  Receive Date: 20100727
  Receipt Date: 20091211
  Transmission Date: 20110219
  Serious: No
  Sender: FDA-Public Use
  Company Number: US-ABBOTT-09P-163-0609524-00

PATIENT
  Sex: Female
  Weight: 79.45 kg

DRUGS (5)
  1. SYNTHROID [Suspect]
     Indication: HYPOTHYROIDISM
     Dates: start: 20090901
  2. SYNTHROID [Suspect]
     Dates: end: 20000101
  3. RESTASIS [Concomitant]
     Indication: DRY EYE
  4. LASIX [Concomitant]
     Indication: HYPERTENSION
  5. UNKNOWN CALCIUM BLOCKER [Concomitant]
     Indication: HYPERTENSION

REACTIONS (2)
  - FEELING COLD [None]
  - FIBROMYALGIA [None]
